FAERS Safety Report 14391450 (Version 4)
Quarter: 2019Q1

REPORT INFORMATION
  Report Type: Report from Study
  Country: JP (occurrence: JP)
  Receive Date: 20180116
  Receipt Date: 20190319
  Transmission Date: 20190417
  Serious: Yes (Hospitalization)
  Sender: FDA-Public Use
  Company Number: JP-TEVA-2018-JP-846629

PATIENT
  Age: 34 Year
  Sex: Male
  Weight: 51 kg

DRUGS (18)
  1. LYRICA [Concomitant]
     Active Substance: PREGABALIN
  2. AMITIZA [Concomitant]
     Active Substance: LUBIPROSTONE
  3. MAGMITT [Concomitant]
     Active Substance: MAGNESIUM OXIDE
  4. LANSOPRAZOLE. [Concomitant]
     Active Substance: LANSOPRAZOLE
  5. GLATIRAMER ACETATE. [Suspect]
     Active Substance: GLATIRAMER ACETATE
     Indication: TUMEFACTIVE MULTIPLE SCLEROSIS
     Dosage: 20 MILLIGRAM DAILY;
     Route: 058
     Dates: start: 20171227
  6. BENET [Concomitant]
     Active Substance: RISEDRONATE SODIUM
     Dates: start: 20180118
  7. URIEF [Concomitant]
     Active Substance: SILODOSIN
  8. BETANIS [Concomitant]
     Active Substance: MIRABEGRON
  9. BONOTEO [Concomitant]
     Active Substance: MINODRONIC ACID
  10. DANTRIUM [Concomitant]
     Active Substance: DANTROLENE SODIUM
  11. PREDONINE [Concomitant]
     Active Substance: PREDNISOLONE
     Dates: start: 20171208
  12. DEPAS (ETIZOLAM) [Concomitant]
     Active Substance: ETIZOLAM
  13. GABALON [Concomitant]
     Active Substance: BACLOFEN
  14. JUVELA [Concomitant]
     Active Substance: .ALPHA.-TOCOPHEROL\RETINOL
  15. DEPAS (ETIZOLAM) [Concomitant]
     Active Substance: ETIZOLAM
  16. ROSUVASTATIN. [Concomitant]
     Active Substance: ROSUVASTATIN
  17. ALFAROL [Concomitant]
     Active Substance: ALFACALCIDOL
  18. CELECOX [Concomitant]
     Active Substance: CELECOXIB
     Dates: start: 20171229

REACTIONS (3)
  - Bone contusion [Recovering/Resolving]
  - Off label use [Unknown]
  - Fall [Recovering/Resolving]

NARRATIVE: CASE EVENT DATE: 20180103
